FAERS Safety Report 12779538 (Version 1)
Quarter: 2016Q3

REPORT INFORMATION
  Report Type: Spontaneous
  Country: US (occurrence: US)
  Receive Date: 20160924
  Receipt Date: 20160924
  Transmission Date: 20161109
  Serious: No
  Sender: FDA-Public Use
  Company Number: None

PATIENT
  Age: 70 Year
  Sex: Female
  Weight: 56.25 kg

DRUGS (10)
  1. DIVALPROEX [Concomitant]
     Active Substance: DIVALPROEX SODIUM
  2. LATANOPROST. [Concomitant]
     Active Substance: LATANOPROST
  3. CINNAMON. [Concomitant]
     Active Substance: CINNAMON
  4. STRESS B-COMPLEX [Concomitant]
  5. VITAMIN D3 [Concomitant]
     Active Substance: CHOLECALCIFEROL
  6. COLESEVELAM [Suspect]
     Active Substance: COLESEVELAM
     Indication: LOW DENSITY LIPOPROTEIN INCREASED
     Dosage: OTHER STRENGTH:;OTHER DOSE:PACKET;OTHER FREQUENCY:;OTHER ROUTE:
     Route: 048
     Dates: start: 20160606, end: 20160701
  7. B IOTIN [Concomitant]
  8. TIMOLOL MALEATE. [Concomitant]
     Active Substance: TIMOLOL MALEATE
  9. TURMERIC [Concomitant]
     Active Substance: TURMERIC
  10. VITMAN C [Concomitant]

REACTIONS (2)
  - Hepatic enzyme increased [None]
  - Urticaria [None]

NARRATIVE: CASE EVENT DATE: 20160701
